FAERS Safety Report 9143381 (Version 1)
Quarter: 2013Q1

REPORT INFORMATION
  Report Type: Spontaneous
  Country: US (occurrence: US)
  Receive Date: 20130306
  Receipt Date: 20130306
  Transmission Date: 20140127
  Serious: No
  Sender: FDA-Public Use
  Company Number: US-ENDO PHARMACEUTICALS INC.-OPER20120102

PATIENT
  Sex: Female

DRUGS (2)
  1. OPANA ER [Suspect]
     Indication: PAIN
     Route: 048
     Dates: start: 201111
  2. OXYCODONE [Concomitant]
     Indication: PAIN
     Dosage: 120-180 MG
     Route: 048

REACTIONS (1)
  - Activities of daily living impaired [Unknown]
